FAERS Safety Report 8250874-1 (Version None)
Quarter: 2012Q2

REPORT INFORMATION
  Report Type: 
  Country: None (occurrence: None)
  Receive Date: 20120402
  Receipt Date: 20120329
  Transmission Date: 20120825
  Serious: Yes (Life-Threatening, Hospitalization)
  Sender: FDA-Public Use
  Company Number: JP-B.I. PHARMACEUTICALS,INC./RIDGEFIELD-2012-BP-00778NB

PATIENT
  Sex: Female

DRUGS (9)
  1. ALOSENN [Concomitant]
     Dosage: 1 G
     Route: 065
  2. AMARYL [Concomitant]
     Dosage: 1 MG
     Route: 065
  3. PRADAXA [Suspect]
     Dosage: 300 MG
     Route: 048
     Dates: start: 20110530
  4. DOXAZOSIN MESYLATE [Concomitant]
     Dosage: 8 MG
     Route: 065
  5. EQUA [Concomitant]
     Dosage: 100 MG
     Route: 065
  6. EPLERENONE [Concomitant]
     Dosage: 50 MG
     Route: 065
  7. TORSEMIDE [Concomitant]
     Dosage: 4 MG
     Route: 065
  8. DIFLUNISAL [Concomitant]
     Route: 065
  9. WARFARIN SODIUM [Concomitant]
     Dosage: 2.25 MG
     Route: 048

REACTIONS (8)
  - GASTRIC ULCER [None]
  - ANAEMIA [None]
  - HAEMORRHAGE [None]
  - GASTRITIS [None]
  - HYPERKALAEMIA [None]
  - RENAL DISORDER [None]
  - DUODENITIS [None]
  - SMALL INTESTINAL HAEMORRHAGE [None]
